FAERS Safety Report 6399552-4 (Version None)
Quarter: 2009Q4

REPORT INFORMATION
  Report Type: 
  Country: None (occurrence: None)
  Receive Date: 20091014
  Receipt Date: 20091005
  Transmission Date: 20100525
  Serious: Yes (Other)
  Sender: FDA-Public Use
  Company Number: US-ASTRAZENECA-2009SE07535

PATIENT
  Age: 16757 Day
  Sex: Male
  Weight: 104.3 kg

DRUGS (7)
  1. CRESTOR [Suspect]
     Indication: HYPERLIPIDAEMIA
     Route: 048
     Dates: start: 20090625, end: 20090810
  2. LEVOXYL [Concomitant]
     Route: 048
  3. FOSAMAX [Concomitant]
  4. TUMS 500 MG CHEW [Concomitant]
     Route: 048
  5. DEPAKOTE [Concomitant]
     Dosage: THREE TABLETS IN AM AND FOUR AT HS
  6. TOPAMAX [Concomitant]
  7. DILANTIN [Concomitant]

REACTIONS (5)
  - ASTHENIA [None]
  - CONFUSIONAL STATE [None]
  - DIPLOPIA [None]
  - FATIGUE [None]
  - MOTOR DYSFUNCTION [None]
